FAERS Safety Report 22236860 (Version 4)
Quarter: 2024Q2

REPORT INFORMATION
  Report Type: Report from Study
  Country: BR (occurrence: BR)
  Receive Date: 20230420
  Receipt Date: 20240402
  Transmission Date: 20240716
  Serious: Yes (Other)
  Sender: FDA-Public Use
  Company Number: BR-CELLTRION INC.-2022BR016316

PATIENT

DRUGS (3)
  1. INFLIXIMAB [Suspect]
     Active Substance: INFLIXIMAB
     Indication: Crohn^s disease
     Dosage: FOUR AMPOULES EVERY EIGHT WEEKS
     Dates: start: 20230417
  2. ATENOLOL [Concomitant]
     Active Substance: ATENOLOL
     Indication: Arrhythmia
     Dosage: 25 MILLIGRAM ONE CAPSULE PER DAY
     Route: 048
     Dates: start: 2021
  3. AZATHIOPRINE [Concomitant]
     Active Substance: AZATHIOPRINE
     Indication: Crohn^s disease
     Dosage: 50 MILLIGRAM;TWO CAPSULES AND HALF PER DAY
     Route: 048
     Dates: start: 2016

REACTIONS (7)
  - Hyperkeratosis [Unknown]
  - Bullous erysipelas [Recovered/Resolved]
  - Allergic cough [Unknown]
  - Dengue fever [Unknown]
  - Chikungunya virus infection [Unknown]
  - Oesophagitis [Recovered/Resolved]
  - Intentional dose omission [Unknown]

NARRATIVE: CASE EVENT DATE: 20240129
